FAERS Safety Report 5609185-2 (Version None)
Quarter: 2008Q1

REPORT INFORMATION
  Report Type: 
  Country: None (occurrence: None)
  Receive Date: 20080130
  Receipt Date: 20080130
  Transmission Date: 20080703
  Serious: No
  Sender: FDA-Public Use
  Company Number: None

PATIENT
  Age: 22 Year
  Sex: Female
  Weight: 64.6 kg

DRUGS (1)
  1. HEPARIN [Suspect]
     Indication: DIALYSIS
     Dosage: L 1500  HD 1000

REACTIONS (4)
  - FEELING HOT [None]
  - LACRIMATION INCREASED [None]
  - NAUSEA [None]
  - PALPITATIONS [None]
